FAERS Safety Report 5383752-6 (Version None)
Quarter: 2007Q3

REPORT INFORMATION
  Report Type: 
  Country: None (occurrence: None)
  Receive Date: 20070706
  Receipt Date: 20070626
  Transmission Date: 20080115
  Serious: Yes (Other)
  Sender: FDA-Public Use
  Company Number: 235031K07USA

PATIENT
  Age: 37 Year
  Sex: Female
  Weight: 97.5234 kg

DRUGS (10)
  1. REBIF [Suspect]
     Indication: MULTIPLE SCLEROSIS
     Dosage: SEE IMAGE
     Route: 058
     Dates: start: 20060409, end: 20070401
  2. REBIF [Suspect]
     Indication: MULTIPLE SCLEROSIS
     Dosage: SEE IMAGE
     Route: 058
     Dates: start: 20070401, end: 20070610
  3. REBIF [Suspect]
     Indication: MULTIPLE SCLEROSIS
     Dosage: SEE IMAGE
     Route: 058
     Dates: start: 20070611
  4. BENADRYL [Concomitant]
  5. ADVIL LIQUI-GELS [Concomitant]
  6. CRESTOR [Concomitant]
  7. COZAAR [Concomitant]
  8. DIAZEPAM [Concomitant]
  9. MECLIZINE [Concomitant]
  10. TOPAMAX [Concomitant]

REACTIONS (8)
  - CHILLS [None]
  - DIABETES MELLITUS [None]
  - FATIGUE [None]
  - FEELING COLD [None]
  - MUSCULOSKELETAL PAIN [None]
  - NECK PAIN [None]
  - TREMOR [None]
  - VERTIGO [None]
